FAERS Safety Report 21884176 (Version 1)
Quarter: 2023Q1

REPORT INFORMATION
  Report Type: Spontaneous
  Country: US (occurrence: US)
  Receive Date: 20230119
  Receipt Date: 20230119
  Transmission Date: 20230417
  Serious: Yes (Hospitalization, Other)
  Sender: FDA-Public Use
  Company Number: US-ASTELLAS-2023US001553

PATIENT
  Age: 67 Year
  Sex: Female

DRUGS (1)
  1. XOSPATA [Suspect]
     Active Substance: GILTERITINIB
     Indication: Acute myeloid leukaemia
     Dosage: UNK UNK, UNKNOWN FREQ.
     Route: 065
     Dates: start: 2020

REACTIONS (8)
  - Pneumonia [Unknown]
  - Delirium [Unknown]
  - Platelet count decreased [Recovering/Resolving]
  - Gait inability [Recovering/Resolving]
  - Movement disorder [Recovering/Resolving]
  - Asthenia [Recovering/Resolving]
  - Hepatic enzyme abnormal [Recovering/Resolving]
  - Pyrexia [Recovered/Resolved]
